FAERS Safety Report 5805955-6 (Version None)
Quarter: 2008Q3

REPORT INFORMATION
  Report Type: 
  Country: None (occurrence: None)
  Receive Date: 20080710
  Receipt Date: 20080702
  Transmission Date: 20090109
  Serious: Yes (Other)
  Sender: FDA-Public Use
  Company Number: US-ROCHE-573638

PATIENT
  Sex: Female
  Weight: 50.3 kg

DRUGS (1)
  1. CAPECITABINE [Suspect]
     Dosage: RECEIVED ONLY THREE CYCLES
     Route: 065
     Dates: start: 20080228

REACTIONS (1)
  - DISEASE PROGRESSION [None]
